FAERS Safety Report 5429310-6 (Version None)
Quarter: 2007Q3

REPORT INFORMATION
  Report Type: 
  Country: None (occurrence: None)
  Receive Date: 20070827
  Receipt Date: 20070814
  Transmission Date: 20080115
  Serious: Yes (Hospitalization, Other)
  Sender: FDA-Public Use
  Company Number: 100#08#2007-03099

PATIENT
  Age: 53 Year
  Sex: 0

DRUGS (3)
  1. CARBOPLATIN [Suspect]
     Indication: LUNG ADENOCARCINOMA STAGE IV
     Dosage: 260 MG, INFUSION
  2. CISPLATIN [Suspect]
     Indication: LUNG ADENOCARCINOMA STAGE IV
     Dosage: 70 MG/M2 (ON DAY 1 EVERY 3 WEEKS (1 CYCLES=3 WEEKS)), INTRAVENOUS
     Route: 042
  3. GEMCITABIN (GEMCITABINE) (GEMCITABINE) [Suspect]
     Indication: LUNG ADENOCARCINOMA STAGE IV
     Dosage: 1250 MG/M2 (ON DAYS 1 AND 8 EVERY 3 WEEKS) INTRAVENOUS
     Route: 042

REACTIONS (1)
  - REVERSIBLE POSTERIOR LEUKOENCEPHALOPATHY SYNDROME [None]
